FAERS Safety Report 23198847 (Version 2)
Quarter: 2023Q4

REPORT INFORMATION
  Report Type: Spontaneous
  Country: CN (occurrence: CN)
  Receive Date: 20231117
  Receipt Date: 20231211
  Transmission Date: 20240109
  Serious: Yes (Hospitalization)
  Sender: FDA-Public Use
  Company Number: CN-ELI_LILLY_AND_COMPANY-CN202311004626

PATIENT
  Age: 46 Year
  Sex: Female
  Weight: 90 kg

DRUGS (2)
  1. TALTZ [Suspect]
     Active Substance: IXEKIZUMAB
     Indication: Psoriasis
     Dosage: 160 MG, OTHER (LOADING DOSE)
     Route: 058
     Dates: start: 20231013
  2. TALTZ [Suspect]
     Active Substance: IXEKIZUMAB
     Dosage: 80 MG, OTHER(MAINTENANCE DOSE)
     Route: 058
     Dates: start: 20231028, end: 20231028

REACTIONS (12)
  - Pyrexia [Recovering/Resolving]
  - Hepatic failure [Unknown]
  - Hypokalaemia [Unknown]
  - Hypothyroidism [Unknown]
  - Hypertension [Unknown]
  - Hepatic steatosis [Unknown]
  - Supraventricular tachycardia [Unknown]
  - Cough [Unknown]
  - Rhinorrhoea [Unknown]
  - Pyrexia [Unknown]
  - Erythema [Unknown]
  - Oropharyngeal pain [Unknown]

NARRATIVE: CASE EVENT DATE: 20231019
